FAERS Safety Report 5507628-6 (Version None)
Quarter: 2007Q4

REPORT INFORMATION
  Report Type: 
  Country: None (occurrence: None)
  Receive Date: 20071105
  Receipt Date: 20071105
  Transmission Date: 20080405
  Serious: Yes (Other)
  Sender: FDA-Public Use
  Company Number: None

PATIENT
  Sex: Male

DRUGS (7)
  1. REVLIMID [Suspect]
     Indication: MULTIPLE MYELOMA
     Dosage: 10MG  DAILY 21D/28D   PO
     Route: 048
  2. NEUPOGEN [Concomitant]
  3. PROCRIT [Concomitant]
  4. ASPIRIN [Concomitant]
  5. DOXYCYCLINE [Concomitant]
  6. COZAAR [Concomitant]
  7. DEXAMETHASONE [Concomitant]

REACTIONS (5)
  - ANAEMIA [None]
  - DEEP VEIN THROMBOSIS [None]
  - LEUKOPENIA [None]
  - THROMBOCYTOPENIA [None]
  - TREATMENT NONCOMPLIANCE [None]
